FAERS Safety Report 7235220-4 (Version None)
Quarter: 2011Q1

REPORT INFORMATION
  Report Type: 
  Country: None (occurrence: None)
  Receive Date: 20110120
  Receipt Date: 20110112
  Transmission Date: 20110831
  Serious: Yes (Hospitalization)
  Sender: FDA-Public Use
  Company Number: CA-US-EMD SERONO, INC.-230297J08CAN

PATIENT
  Sex: Female

DRUGS (3)
  1. REBIF [Suspect]
     Indication: RELAPSING-REMITTING MULTIPLE SCLEROSIS
     Dates: start: 20030915
  2. SATIVEX [Concomitant]
  3. TOPAMAX [Concomitant]

REACTIONS (2)
  - ASTHENIA [None]
  - PNEUMONIA [None]
